FAERS Safety Report 23455552 (Version 1)
Quarter: 2024Q1

REPORT INFORMATION
  Report Type: Spontaneous
  Country: US (occurrence: US)
  Receive Date: 20240130
  Receipt Date: 20240130
  Transmission Date: 20240410
  Serious: No
  Sender: FDA-Public Use
  Company Number: US-SA-SAC20240124001201

PATIENT
  Age: 10 Year
  Sex: Male

DRUGS (2)
  1. ELOCTATE [Suspect]
     Active Substance: EFMOROCTOCOG ALFA
     Dosage: 2000 TO 2400 UNITS, PRN
     Route: 065
  2. ELOCTATE [Suspect]
     Active Substance: EFMOROCTOCOG ALFA
     Dosage: 2000 TO 2400 UNITS, PRN
     Route: 065

REACTIONS (3)
  - Accident [Unknown]
  - Ligament sprain [Unknown]
  - Bone contusion [Unknown]

NARRATIVE: CASE EVENT DATE: 20240120
